FAERS Safety Report 7084590-9 (Version None)
Quarter: 2010Q4

REPORT INFORMATION
  Report Type: 
  Country: None (occurrence: None)
  Receive Date: 20101104
  Receipt Date: 20101102
  Transmission Date: 20110411
  Serious: Yes (Hospitalization)
  Sender: FDA-Public Use
  Company Number: US-WYE-H17491210

PATIENT
  Sex: Female
  Weight: 74 kg

DRUGS (8)
  1. INOTUZUMAB OZOGAMICIN [Suspect]
     Indication: DIFFUSE LARGE B-CELL LYMPHOMA
     Dosage: 3.42 MG DAY 2 OF EACH CYCLE
     Route: 042
     Dates: start: 20100527, end: 20100708
  2. ETOPOSIDE [Suspect]
     Indication: DIFFUSE LARGE B-CELL LYMPHOMA
     Dosage: NOT PROVIDED
     Route: 065
     Dates: start: 20100821, end: 20100824
  3. NIFEDIPINE [Concomitant]
     Indication: HYPERTENSION
     Route: 065
  4. MELPHALAN HYDROCHLORIDE [Suspect]
     Indication: DIFFUSE LARGE B-CELL LYMPHOMA
     Dosage: NOT PROVIDED
     Route: 065
     Dates: start: 20100825, end: 20100825
  5. RITUXIMAB/INOTUZUMAB OZOGAMICIN [Suspect]
     Indication: DIFFUSE LARGE B-CELL LYMPHOMA
     Dosage: NOT PROVIDED
     Route: 042
  6. INSULIN [Concomitant]
     Indication: TYPE 2 DIABETES MELLITUS
     Dosage: NOT PROVIDED
     Route: 065
  7. CARMUSTINE [Suspect]
     Indication: DIFFUSE LARGE B-CELL LYMPHOMA
     Dosage: NOT PROVIDED
     Route: 065
     Dates: start: 20100820, end: 20100820
  8. CYTARABINE [Suspect]
     Indication: DIFFUSE LARGE B-CELL LYMPHOMA
     Dosage: NOT PROVIDED
     Route: 065
     Dates: start: 20100821, end: 20100824

REACTIONS (4)
  - HYPERBILIRUBINAEMIA [None]
  - RENAL FAILURE [None]
  - RESPIRATORY FAILURE [None]
  - STAPHYLOCOCCAL INFECTION [None]
